FAERS Safety Report 9421723 (Version 1)
Quarter: 2013Q3

REPORT INFORMATION
  Report Type: Spontaneous
  Country: US (occurrence: US)
  Receive Date: 20130726
  Receipt Date: 20130726
  Transmission Date: 20140515
  Serious: Yes (Death, Hospitalization, Disabling, Other)
  Sender: FDA-Public Use
  Company Number: US-009507513-1307USA008979

PATIENT
  Sex: Female

DRUGS (3)
  1. FOSAMAX [Suspect]
     Dosage: 1 X WEEK
     Route: 048
     Dates: start: 200010, end: 200510
  2. METFORMIN [Concomitant]
     Route: 048
  3. AVANDIA [Concomitant]

REACTIONS (5)
  - Hip fracture [Fatal]
  - Surgery [Unknown]
  - Abasia [Unknown]
  - Drug ineffective [Unknown]
  - General physical health deterioration [Unknown]
